FAERS Safety Report 5154684-3 (Version None)
Quarter: 2006Q4

REPORT INFORMATION
  Report Type: 
  Country: None (occurrence: None)
  Receive Date: 20061113
  Receipt Date: 20061107
  Transmission Date: 20070319
  Serious: Yes (Death)
  Sender: FDA-Public Use
  Company Number: 200611AGG00510

PATIENT
  Age: 79 Year
  Sex: Male
  Weight: 60 kg

DRUGS (5)
  1. AGGRASTAT [Suspect]
     Indication: CARDIAC ENZYMES INCREASED
     Dosage: IV
     Route: 042
     Dates: start: 20061026
  2. THERAPY UNSPECIFIED [Concomitant]
  3. ASPIRIN [Concomitant]
  4. CLOPIDOGREL BISULFATE [Concomitant]
  5. HEPARIN LOW MOLECULAR WEIGHT [Concomitant]

REACTIONS (14)
  - BLOOD CHOLESTEROL INCREASED [None]
  - BLOOD CREATINE PHOSPHOKINASE MB INCREASED [None]
  - BLOOD CREATININE INCREASED [None]
  - BLOOD GLUCOSE INCREASED [None]
  - CHEST PAIN [None]
  - CREATININE RENAL CLEARANCE DECREASED [None]
  - EJECTION FRACTION DECREASED [None]
  - ELECTROCARDIOGRAM ST SEGMENT ABNORMAL [None]
  - GLYCOSYLATED HAEMOGLOBIN INCREASED [None]
  - HAEMATOCRIT DECREASED [None]
  - HAEMOGLOBIN DECREASED [None]
  - PROTEINURIA [None]
  - TROPONIN T INCREASED [None]
  - WHITE BLOOD CELL COUNT INCREASED [None]
